FAERS Safety Report 16703550 (Version 4)
Quarter: 2019Q4

REPORT INFORMATION
  Report Type: Report from Study
  Country: ZA (occurrence: ZA)
  Receive Date: 20190814
  Receipt Date: 20191021
  Transmission Date: 20200122
  Serious: Yes (Other)
  Sender: FDA-Public Use
  Company Number: PHHY2019ZA187080

PATIENT
  Age: 51 Year
  Sex: Female

DRUGS (6)
  1. NEXIUM [Concomitant]
     Active Substance: ESOMEPRAZOLE MAGNESIUM
     Indication: PRODUCT USED FOR UNKNOWN INDICATION
     Dosage: 40 MG, QD
     Route: 065
  2. EXJADE [Suspect]
     Active Substance: DEFERASIROX
     Indication: THALASSAEMIA
     Dosage: 2000 MG, QD (STARTED 10 YEARS AGO)
     Route: 065
  3. EXJADE [Suspect]
     Active Substance: DEFERASIROX
     Dosage: FLUCTUATES BETWEEN 1500 MG AND 2000MG ON ALTERNATE DAYS
     Route: 065
  4. CALMAG [Concomitant]
     Indication: PRODUCT USED FOR UNKNOWN INDICATION
     Route: 065
  5. D VITAMIINI [Concomitant]
     Active Substance: VITAMIN D NOS
     Indication: PRODUCT USED FOR UNKNOWN INDICATION
     Route: 065
  6. B-VITAMINS [Concomitant]
     Indication: PRODUCT USED FOR UNKNOWN INDICATION
     Route: 065

REACTIONS (11)
  - Diabetes mellitus [Unknown]
  - Gastric ulcer [Unknown]
  - Dyspepsia [Unknown]
  - Pain in extremity [Unknown]
  - Depression [Unknown]
  - Abdominal discomfort [Unknown]
  - Abdominal pain upper [Unknown]
  - Malaise [Unknown]
  - Serum ferritin increased [Unknown]
  - Osteoporosis [Unknown]
  - Spinal pain [Unknown]

NARRATIVE: CASE EVENT DATE: 20190803
